FAERS Safety Report 5928612-4 (Version None)
Quarter: 2008Q3

REPORT INFORMATION
  Report Type: 
  Country: None (occurrence: None)
  Receive Date: 20080923
  Receipt Date: 20080213
  Transmission Date: 20090109
  Serious: Yes (Other)
  Sender: FDA-Public Use
  Company Number: WAES 0802USA03483

PATIENT
  Age: 75 Year
  Sex: Male

DRUGS (5)
  1. VYTORIN [Suspect]
     Indication: HYPERCHOLESTEROLAEMIA
     Dosage: 10-80 MG/DAILY/PO
     Route: 048
     Dates: start: 20070301, end: 20080212
  2. LODINE [Suspect]
     Dosage: 1200 MG/DAILY
     Dates: end: 20080212
  3. PLAVIX [Concomitant]
  4. PRILOSEC [Concomitant]
  5. METOPROLOL [Concomitant]

REACTIONS (1)
  - RHABDOMYOLYSIS [None]
